FAERS Safety Report 19731318 (Version 2)
Quarter: 2021Q3

REPORT INFORMATION
  Report Type: Spontaneous
  Country: DE (occurrence: DE)
  Receive Date: 20210820
  Receipt Date: 20210820
  Transmission Date: 20211014
  Serious: Yes (Other)
  Sender: FDA-Public Use
  Company Number: DE-JAZZ-2020-DE-015962

PATIENT
  Age: 68 Year

DRUGS (2)
  1. VYXEOS [Suspect]
     Active Substance: CYTARABINE\DAUNORUBICIN
     Indication: ACUTE MYELOID LEUKAEMIA
     Dosage: 44/100 MG/M2, 1ST INDUCTION?DAY 1,3 AND 5
     Route: 042
     Dates: start: 2020, end: 2020
  2. VYXEOS [Suspect]
     Active Substance: CYTARABINE\DAUNORUBICIN
     Dosage: 44/100 MG/M2 (SECOND INDUCTION CYCLE, DAY 1,3
     Route: 042
     Dates: start: 2020, end: 2020

REACTIONS (1)
  - Febrile neutropenia [Recovered/Resolved]

NARRATIVE: CASE EVENT DATE: 2020
